FAERS Safety Report 5367254-9 (Version None)
Quarter: 2007Q2

REPORT INFORMATION
  Report Type: 
  Country: None (occurrence: None)
  Receive Date: 20070620
  Receipt Date: 20070620
  Transmission Date: 20071010
  Serious: No
  Sender: FDA-Public Use
  Company Number: None

PATIENT
  Sex: Male
  Weight: 131.0895 kg

DRUGS (1)
  1. GENERIC FLUTICASONE 50MCG NASAL SPRAY - PAR PHARM [Suspect]
     Dosage: 2 PUFFS DAY INTO NOSE

REACTIONS (1)
  - DRUG INEFFECTIVE [None]
